FAERS Safety Report 4451419-4 (Version None)
Quarter: 2004Q3

REPORT INFORMATION
  Report Type: 
  Country: None (occurrence: None)
  Receive Date: 20040916
  Receipt Date: 20040907
  Transmission Date: 20050211
  Serious: Yes (Other)
  Sender: FDA-Public Use
  Company Number: US-JNJFOC-20040902310

PATIENT
  Age: 42 Year
  Sex: Female

DRUGS (12)
  1. DURAGESIC [Suspect]
     Route: 062
  2. DURAGESIC [Suspect]
     Route: 062
  3. DURAGESIC [Suspect]
     Route: 062
  4. DURAGESIC [Suspect]
     Route: 062
  5. NORCO [Concomitant]
     Route: 049
  6. NORCO [Concomitant]
     Route: 049
  7. TRAZODONE HCL [Concomitant]
     Route: 049
  8. TOPAMAX [Concomitant]
     Route: 049
  9. FLEXERIL [Concomitant]
     Route: 049
  10. XANAX [Concomitant]
     Route: 049
  11. PROZAC [Concomitant]
     Route: 049
  12. CELEBREX [Concomitant]
     Route: 049

REACTIONS (4)
  - BRAIN DAMAGE [None]
  - CONVULSION [None]
  - DRUG INTERACTION [None]
  - THERAPEUTIC RESPONSE DECREASED [None]
